FAERS Safety Report 10572507 (Version 2)
Quarter: 2014Q4

REPORT INFORMATION
  Report Type: Spontaneous
  Country: US (occurrence: US)
  Receive Date: 20141110
  Receipt Date: 20141209
  Transmission Date: 20150529
  Serious: No
  Sender: FDA-Public Use
  Company Number: US-009507513-1410USA010910

PATIENT
  Sex: Male

DRUGS (1)
  1. TRILAFON [Suspect]
     Active Substance: PERPHENAZINE
     Dosage: 8 MG, HS
     Route: 048
     Dates: start: 201301

REACTIONS (2)
  - Delusion [Unknown]
  - Mania [Unknown]
